FAERS Safety Report 6267218-7 (Version None)
Quarter: 2009Q3

REPORT INFORMATION
  Report Type: 
  Country: None (occurrence: None)
  Receive Date: 20090714
  Receipt Date: 20090701
  Transmission Date: 20100115
  Serious: Yes (Other)
  Sender: FDA-Public Use
  Company Number: DE-ABBOTT-09P-062-0584596-00

PATIENT
  Sex: Male
  Weight: 86 kg

DRUGS (3)
  1. KALETRA [Suspect]
     Indication: HIV INFECTION
     Dosage: 2X2
     Route: 048
     Dates: start: 20080604
  2. KIVEXA [Concomitant]
     Indication: HIV INFECTION
     Route: 048
     Dates: start: 20080604, end: 20080722
  3. TRUVADA [Concomitant]
     Indication: HIV INFECTION
     Dosage: 1X1
     Route: 048
     Dates: start: 20080723

REACTIONS (3)
  - HEPATITIS C [None]
  - HEPATITIS C VIRUS TEST [None]
  - SCIATICA [None]
